FAERS Safety Report 9326005 (Version 1)
Quarter: 2013Q2

REPORT INFORMATION
  Report Type: Report from Study
  Country: KR (occurrence: KR)
  Receive Date: 20130604
  Receipt Date: 20130604
  Transmission Date: 20140414
  Serious: Yes (Other)
  Sender: FDA-Public Use
  Company Number: KR-SANOFI-AVENTIS-2013SA056043

PATIENT
  Sex: 0

DRUGS (7)
  1. CISPLATIN [Suspect]
     Indication: NON-SMALL CELL LUNG CANCER
     Dosage: ON DAY 1 AND 8 OF A 3 WEEK CYCLE, ADMINISTERED OVER 30 MIN DISSOLVED IN 150 ML OF 0.9 PERCENT SALINE
     Route: 042
  2. DOCETAXEL [Suspect]
     Indication: NON-SMALL CELL LUNG CANCER
     Dosage: INFUSION, DAY 1 AND 8 OF A 3 WEEK CYCLE; INFUSED OVER 30 MIN; DISSOLVED IN 250 ML OF 5 % DEXTROSE
     Route: 065
  3. DEXAMETHASONE [Concomitant]
  4. ANTIEMETICS AND ANTINAUSEANTS [Concomitant]
     Indication: PROPHYLAXIS
     Route: 042
  5. ANTIEMETICS AND ANTINAUSEANTS [Concomitant]
     Indication: PROPHYLAXIS
     Route: 048
  6. NORMAL SALINE [Concomitant]
     Dosage: GIVEN OVER 60 MIN BEFORE CISPLATIN
  7. NORMAL SALINE [Concomitant]
     Dosage: GIVEN OVER 90-120 MIN AFTER CISPLATIN

REACTIONS (1)
  - Adrenal insufficiency [Unknown]
